FAERS Safety Report 6962626-0 (Version None)
Quarter: 2010Q3

REPORT INFORMATION
  Report Type: 
  Country: None (occurrence: None)
  Receive Date: 20100902
  Receipt Date: 20100823
  Transmission Date: 20110219
  Serious: Yes (Other)
  Sender: FDA-Public Use
  Company Number: BE-PFIZER INC-2010102916

PATIENT
  Sex: Male

DRUGS (7)
  1. LYRICA [Suspect]
     Indication: POLYNEUROPATHY
     Dosage: 75 MG, 2X/DAY
     Route: 048
     Dates: start: 20100528, end: 20100709
  2. GABAPENTIN [Suspect]
     Indication: POLYNEUROPATHY
     Dosage: 300 MG, 2X/DAY
     Dates: start: 20100709
  3. LIPITOR [Concomitant]
     Dosage: 15 MG, 1X/DAY
     Route: 048
  4. ACETAMINOPHEN [Concomitant]
     Indication: OSTEOARTHRITIS
     Dosage: UNK
     Route: 048
  5. IBUPROFEN [Concomitant]
     Indication: OSTEOARTHRITIS
     Dosage: UNK
     Route: 048
  6. BIOFENAC ^UCB^ [Concomitant]
     Indication: OSTEOARTHRITIS
     Dosage: UNK
     Route: 048
  7. LACTASE [Concomitant]
     Dosage: UNK

REACTIONS (2)
  - GASTROINTESTINAL DISORDER [None]
  - HYPERTENSION [None]
